FAERS Safety Report 18755374 (Version 1)
Quarter: 2021Q1

REPORT INFORMATION
  Report Type: Spontaneous
  Country: US (occurrence: US)
  Receive Date: 20210119
  Receipt Date: 20210119
  Transmission Date: 20210419
  Serious: No
  Sender: FDA-Public Use
  Company Number: US-D.O.R.C. INTERNATIONAL, B.V.-2105513

PATIENT
  Age: 66 Year
  Sex: Male
  Weight: 95.46 kg

DRUGS (1)
  1. TISSUEBLUE [Suspect]
     Active Substance: BRILLIANT BLUE G
     Route: 031

REACTIONS (1)
  - Non-infectious endophthalmitis [None]

NARRATIVE: CASE EVENT DATE: 20200722
